FAERS Safety Report 8431369-9 (Version None)
Quarter: 2012Q2

REPORT INFORMATION
  Report Type: 
  Country: None (occurrence: None)
  Receive Date: 20120613
  Receipt Date: 20120612
  Transmission Date: 20120825
  Serious: No
  Sender: FDA-Public Use
  Company Number: US-PFIZER INC-2012141592

PATIENT
  Sex: Female
  Weight: 74.8 kg

DRUGS (2)
  1. CHANTIX [Suspect]
     Indication: SMOKING CESSATION THERAPY
     Dosage: 0.5 MG, 1X/DAY
     Route: 048
     Dates: start: 20100201, end: 20100201
  2. CHANTIX [Suspect]
     Dosage: UNK
     Route: 048
     Dates: end: 20100201

REACTIONS (1)
  - ABNORMAL DREAMS [None]
